FAERS Safety Report 7796925-X (Version None)
Quarter: 2011Q4

REPORT INFORMATION
  Report Type: 
  Country: None (occurrence: None)
  Receive Date: 20111003
  Receipt Date: 20110920
  Transmission Date: 20120403
  Serious: Yes (Other)
  Sender: FDA-Public Use
  Company Number: US-1188147

PATIENT
  Age: 5 Year
  Sex: Male

DRUGS (2)
  1. PREDNISOLONE ACETATE [Suspect]
     Indication: UVEITIS
     Dosage: OPHTHALMIC
     Route: 047
  2. PREDNISOLONE ACETATE [Suspect]
     Indication: IRITIS
     Dosage: OPHTHALMIC
     Route: 047

REACTIONS (8)
  - PRODUCT SUBSTITUTION ISSUE [None]
  - PRODUCT PHYSICAL ISSUE [None]
  - DISEASE PROGRESSION [None]
  - CATARACT [None]
  - BLINDNESS TRANSIENT [None]
  - DRUG INEFFECTIVE [None]
  - IRITIS [None]
  - UVEITIS [None]
